FAERS Safety Report 4965038-4 (Version None)
Quarter: 2006Q2

REPORT INFORMATION
  Report Type: 
  Country: None (occurrence: None)
  Receive Date: 20060403
  Receipt Date: 20060309
  Transmission Date: 20061013
  Serious: Yes (Death)
  Sender: FDA-Public Use
  Company Number: 2005149720

PATIENT
  Age: 70 Year
  Sex: Female
  Weight: 45.6 kg

DRUGS (18)
  1. IRINOTECAN HCL [Suspect]
     Indication: GASTRIC CANCER
     Dosage: 10 MG; INTRAVENOUS
     Route: 042
     Dates: start: 20051015, end: 20051015
  2. CISPLATIN [Suspect]
     Indication: GASTRIC CANCER
     Dosage: 15 MG ; INTRAVENOUS
     Route: 042
     Dates: start: 20051015, end: 20051015
  3. DEXAMETHASONE [Suspect]
     Indication: ILL-DEFINED DISORDER
     Dosage: UNK (16 MG,  14 MG, 12MG,  10 MG, 8 MG;  INTRAVENOUS
     Route: 042
     Dates: start: 20050926, end: 20051006
  4. DEXAMETHASONE [Suspect]
     Indication: ILL-DEFINED DISORDER
     Dosage: UNK (16 MG,  14 MG, 12MG,  10 MG, 8 MG;  INTRAVENOUS
     Route: 042
     Dates: start: 20051007, end: 20051007
  5. DEXAMETHASONE [Suspect]
     Indication: ILL-DEFINED DISORDER
     Dosage: UNK (16 MG,  14 MG, 12MG,  10 MG, 8 MG;  INTRAVENOUS
     Route: 042
     Dates: start: 20051008, end: 20051008
  6. DEXAMETHASONE [Suspect]
     Indication: ILL-DEFINED DISORDER
     Dosage: UNK (16 MG,  14 MG, 12MG,  10 MG, 8 MG;  INTRAVENOUS
     Route: 042
     Dates: start: 20051009, end: 20051009
  7. DEXAMETHASONE [Suspect]
     Indication: ILL-DEFINED DISORDER
     Dosage: UNK (16 MG,  14 MG, 12MG,  10 MG, 8 MG;  INTRAVENOUS
     Route: 042
     Dates: start: 20051010, end: 20051017
  8. LASIX [Concomitant]
  9. GLYCEOL (FRUCTOSE, GLYCEROL) [Concomitant]
  10. NICARDIPINE HCL [Concomitant]
  11. OMEPRAZOLE [Concomitant]
  12. FUTHAN (NAFAMOSTAT MESILATE) [Concomitant]
  13. NOVORAPID (INSULIN ASPART) [Concomitant]
  14. GLUCOSE [Concomitant]
  15. AMIPAREN (AMINO ACIDS NOS) [Concomitant]
  16. SODIUM CHLORIDE [Concomitant]
  17. CALCIUM CHLORIDE DIHYDRATE [Concomitant]
  18. MULTIVITAMIN [Concomitant]

REACTIONS (8)
  - BLOOD PRESSURE DECREASED [None]
  - CHILLS [None]
  - DIARRHOEA [None]
  - DISEASE PROGRESSION [None]
  - GLYCOSYLATED HAEMOGLOBIN INCREASED [None]
  - HYPERGLYCAEMIA [None]
  - INTESTINAL PERFORATION [None]
  - VOMITING [None]
